FAERS Safety Report 5898957-5 (Version None)
Quarter: 2008Q3

REPORT INFORMATION
  Report Type: 
  Country: None (occurrence: None)
  Receive Date: 20080925
  Receipt Date: 20080919
  Transmission Date: 20090109
  Serious: Yes (Hospitalization, Other)
  Sender: FDA-Public Use
  Company Number: US-ELI_LILLY_AND_COMPANY-US200809001511

PATIENT
  Sex: Female
  Weight: 111 kg

DRUGS (27)
  1. HUMALOG [Suspect]
     Indication: DIABETES MELLITUS
     Dates: start: 19790101
  2. LANTUS [Concomitant]
     Dosage: 40 U, DAILY (1/D)
  3. METFORMIN HCL [Concomitant]
     Dates: end: 20080501
  4. METOPROLOL TARTRATE [Concomitant]
     Dosage: 150 MG, 2/D
  5. ASPIRIN [Concomitant]
     Dosage: 81 MG, DAILY (1/D)
  6. LASIX [Concomitant]
     Dosage: 40 MG, DAILY (1/D)
  7. POTASSIUM CHLORIDE [Concomitant]
     Dosage: 20 MEQ, DAILY (1/D)
  8. IMDUR [Concomitant]
     Dosage: 30 MG, 2/D
  9. PLAVIX [Concomitant]
     Dosage: 75 MG, DAILY (1/D)
  10. ACIPHEX [Concomitant]
     Dosage: 20 MG, 2/D
  11. CALCIUM CARBONATE [Concomitant]
     Dosage: 1500 MG, AS NEEDED
  12. TYLENOL /USA/ [Concomitant]
     Indication: PAIN
     Dosage: 650 MG, AS NEEDED
  13. TYLENOL /USA/ [Concomitant]
     Dosage: 1000 MG, 3/D
  14. CARAFATE [Concomitant]
     Dosage: 1 G, 4/D
  15. COZAAR [Concomitant]
     Dosage: 100 MG, DAILY (1/D)
  16. NOVOLOG [Concomitant]
  17. ANTIVERT [Concomitant]
     Indication: DIZZINESS
     Dosage: 25 MG, AS NEEDED
  18. NASONEX [Concomitant]
     Dosage: UNK, DAILY (1/D)
  19. MULTI-VITAMIN [Concomitant]
     Dosage: UNK, DAILY (1/D)
  20. CENTRUM SILVER [Concomitant]
     Dosage: UNK, DAILY (1/D)
  21. NITROSTAT [Concomitant]
     Dosage: 0.4 MG, AS NEEDED
     Route: 060
  22. MIRALAX [Concomitant]
     Dosage: 17 G, DAILY (1/D)
  23. RANEXA [Concomitant]
     Dosage: 1000 MG, 2/D
  24. OPTIVAR [Concomitant]
     Dosage: UNK, 2/D
  25. GENTEAL [Concomitant]
     Dosage: UNK, EACH EVENING
  26. ALBUTEROL [Concomitant]
     Indication: WHEEZING
     Dosage: UNK, AS NEEDED
  27. ASCORBIC ACID [Concomitant]

REACTIONS (31)
  - ABDOMINAL PAIN UPPER [None]
  - ANGINA PECTORIS [None]
  - ASTHMA [None]
  - BIOPSY BREAST [None]
  - CARPAL TUNNEL DECOMPRESSION [None]
  - CATARACT [None]
  - CHEST PAIN [None]
  - CORONARY ANGIOPLASTY [None]
  - CORONARY ARTERY DISEASE [None]
  - DIABETIC RETINOPATHY [None]
  - DIVERTICULITIS [None]
  - DRUG HYPERSENSITIVITY [None]
  - EYE HAEMORRHAGE [None]
  - EYE LASER SURGERY [None]
  - GASTROOESOPHAGEAL REFLUX DISEASE [None]
  - GOITRE [None]
  - GOUT [None]
  - HAEMORRHOID OPERATION [None]
  - HIATUS HERNIA [None]
  - HYPERLIPIDAEMIA [None]
  - HYPERSENSITIVITY [None]
  - INTERVERTEBRAL DISC DEGENERATION [None]
  - METABOLIC SYNDROME [None]
  - MYOCARDIAL INFARCTION [None]
  - OSTEOARTHRITIS [None]
  - PAIN IN EXTREMITY [None]
  - PANCREATITIS CHRONIC [None]
  - RASH [None]
  - SALIVARY GLAND OPERATION [None]
  - TRANSIENT ISCHAEMIC ATTACK [None]
  - VISUAL ACUITY REDUCED [None]
